FAERS Safety Report 9715230 (Version 3)
Quarter: 2014Q1

REPORT INFORMATION
  Report Type: Spontaneous
  Country: US (occurrence: US)
  Receive Date: 20131126
  Receipt Date: 20140203
  Transmission Date: 20141002
  Serious: Yes (Other)
  Sender: FDA-Public Use
  Company Number: US-009507513-1311USA007636

PATIENT
  Age: 61 Year
  Sex: Female
  Weight: 59.86 kg

DRUGS (6)
  1. VICTRELIS [Suspect]
     Indication: MULTIPLE SCLEROSIS
     Dosage: 800 MG, TID
     Route: 048
     Dates: start: 20130825
  2. VICTRELIS [Suspect]
     Indication: HEPATITIS C
  3. RIBASPHERE [Suspect]
     Indication: HEPATITIS C
     Dosage: UNK
     Dates: start: 20130728
  4. PEGASYS [Suspect]
     Indication: HEPATITIS C
     Dosage: UNK
     Dates: start: 20130728
  5. CALCIUM CARBONATE [Concomitant]
     Dosage: 500 UNIT NOT PROVIDED
  6. TYLENOL [Concomitant]

REACTIONS (3)
  - Adverse event [Unknown]
  - Platelet count decreased [Unknown]
  - Off label use [Unknown]
